FAERS Safety Report 24541096 (Version 1)
Quarter: 2024Q4

REPORT INFORMATION
  Report Type: Report from Study
  Country: CN (occurrence: CN)
  Receive Date: 20241023
  Receipt Date: 20241023
  Transmission Date: 20250115
  Serious: Yes (Other)
  Sender: AMGEN
  Company Number: CN-AMGEN-CHNNI2024203398

PATIENT
  Age: 34 Year
  Sex: Female

DRUGS (1)
  1. TEPROTUMUMAB [Suspect]
     Active Substance: TEPROTUMUMAB
     Indication: Product used for unknown indication
     Dosage: 500 MILLIGRAM, Q3WK
     Route: 040
     Dates: start: 20240516

REACTIONS (4)
  - Deafness [Unknown]
  - Eustachian tube disorder [Unknown]
  - Tinnitus [Unknown]
  - Ear swelling [Unknown]

NARRATIVE: CASE EVENT DATE: 20240618
